FAERS Safety Report 8432495-0 (Version None)
Quarter: 2012Q2

REPORT INFORMATION
  Report Type: 
  Country: None (occurrence: None)
  Receive Date: 20120613
  Receipt Date: 20120531
  Transmission Date: 20120825
  Serious: Yes (Hospitalization)
  Sender: FDA-Public Use
  Company Number: PHEH2012US011768

PATIENT
  Sex: Female

DRUGS (2)
  1. SOLU-MEDROL [Concomitant]
     Dosage: UNK UKN, UNK
  2. GILENYA [Suspect]
     Indication: MULTIPLE SCLEROSIS
     Dosage: UNK UKN, UNK
     Route: 048

REACTIONS (4)
  - PANCREATITIS [None]
  - NAUSEA [None]
  - INFECTION [None]
  - MULTIPLE SCLEROSIS RELAPSE [None]
